FAERS Safety Report 6506910-3 (Version None)
Quarter: 2009Q4

REPORT INFORMATION
  Report Type: 
  Country: None (occurrence: None)
  Receive Date: 20091127
  Receipt Date: 20090928
  Transmission Date: 20100525
  Serious: Yes (Hospitalization)
  Sender: FDA-Public Use
  Company Number: US200909006393

PATIENT
  Age: 69 Year
  Sex: Male
  Weight: 108.8 kg

DRUGS (14)
  1. BYETTA [Suspect]
     Indication: TYPE 2 DIABETES MELLITUS
     Dosage: 5 UG, 2/D, SUBCUTANEOUS 10 UG, 2/D, SUBCUTANEOUS
     Route: 058
     Dates: end: 20080101
  2. BYETTA [Suspect]
     Indication: TYPE 2 DIABETES MELLITUS
     Dosage: 5 UG, 2/D, SUBCUTANEOUS 10 UG, 2/D, SUBCUTANEOUS
     Route: 058
     Dates: end: 20090921
  3. BYETTA [Suspect]
     Indication: TYPE 2 DIABETES MELLITUS
     Dosage: 5 UG, 2/D, SUBCUTANEOUS 10 UG, 2/D, SUBCUTANEOUS
     Route: 058
  4. BYETTA [Suspect]
     Indication: TYPE 2 DIABETES MELLITUS
     Dosage: 5 UG, 2/D, SUBCUTANEOUS 10 UG, 2/D, SUBCUTANEOUS
     Route: 058
     Dates: start: 20090901
  5. DIOVAN [Concomitant]
  6. ACTOS /AUS/ (PIOGLITAZINE HYDROCHLORIDE) [Concomitant]
  7. TRICOR [Concomitant]
  8. AMLODIPINE BESYLATE [Concomitant]
  9. SPIRONOLACTONE [Concomitant]
  10. FORTAMET ER (METFORMIN HYDROCHLORIDE) [Concomitant]
  11. GLIMEPIRIDE [Concomitant]
  12. ROBAXIN [Concomitant]
  13. NEURONTIN [Concomitant]
  14. ULTRAM [Concomitant]

REACTIONS (5)
  - ABDOMINAL PAIN UPPER [None]
  - BLOOD GLUCOSE INCREASED [None]
  - DRUG INEFFECTIVE [None]
  - PANCREATIC ENZYMES INCREASED [None]
  - PANCREATITIS [None]
